FAERS Safety Report 25267527 (Version 3)
Quarter: 2025Q3

REPORT INFORMATION
  Report Type: Report from Study
  Country: US (occurrence: US)
  Receive Date: 20250505
  Receipt Date: 20250729
  Transmission Date: 20251021
  Serious: No
  Sender: ACADIA PHARMACEUTICALS
  Company Number: US-ACADIA PHARMACEUTICALS INC.-ACA-2025-TRF-004904

PATIENT
  Sex: Female
  Weight: 13.8 kg

DRUGS (6)
  1. DAYBUE [Suspect]
     Active Substance: TROFINETIDE
     Indication: Rett syndrome
     Dosage: 12.5 MILLILITER, BID
     Route: 048
     Dates: start: 20250126
  2. GABAPENTIN [Concomitant]
     Active Substance: GABAPENTIN
  3. CLOBAZAM [Concomitant]
     Active Substance: CLOBAZAM
  4. MELATONIN [Concomitant]
     Active Substance: MELATONIN
  5. ALBUTEROL [Concomitant]
     Active Substance: ALBUTEROL
  6. BUDESONIDE [Concomitant]
     Active Substance: BUDESONIDE

REACTIONS (2)
  - Flatulence [Recovered/Resolved]
  - Prescribed underdose [Recovered/Resolved]
